FAERS Safety Report 8074106-2 (Version None)
Quarter: 2012Q1

REPORT INFORMATION
  Report Type: 
  Country: None (occurrence: None)
  Receive Date: 20120126
  Receipt Date: 20120124
  Transmission Date: 20120608
  Serious: Yes (Other)
  Sender: FDA-Public Use
  Company Number: US-BAYER-2012-007524

PATIENT
  Sex: Male

DRUGS (5)
  1. ACETYLSALICYLIC ACID SRT [Suspect]
     Indication: IMMUNE TOLERANCE INDUCTION
     Dosage: 40-81 MG UNK
     Dates: start: 20080101, end: 20080101
  2. ACETYLSALICYLIC ACID SRT [Suspect]
     Dosage: UNK
     Dates: start: 20110601, end: 20110601
  3. PREDNISONE TAB [Concomitant]
     Dosage: 30 MG, UNK
  4. MONTELUKAST [Concomitant]
     Indication: PROPHYLAXIS
     Dosage: 10 MG, HS
  5. PREDNISONE TAB [Concomitant]
     Indication: PROPHYLAXIS
     Dosage: 30 MG, QD

REACTIONS (2)
  - URTICARIA [None]
  - ANALGESIC ASTHMA SYNDROME [None]
